FAERS Safety Report 24731651 (Version 1)
Quarter: 2024Q4

REPORT INFORMATION
  Report Type: Spontaneous
  Country: US (occurrence: US)
  Receive Date: 20241213
  Receipt Date: 20241213
  Transmission Date: 20250115
  Serious: No
  Sender: JOHNSON AND JOHNSON
  Company Number: US-JNJFOC-20241136558

PATIENT
  Age: 68 Year
  Sex: Female

DRUGS (13)
  1. TREMFYA [Suspect]
     Active Substance: GUSELKUMAB
     Indication: Psoriasis
  2. BUPROPION [Concomitant]
     Active Substance: BUPROPION
  3. WELLBUTRIN [Concomitant]
     Active Substance: BUPROPION HYDROCHLORIDE
  4. DULOXETINE [Concomitant]
     Active Substance: DULOXETINE
  5. CANDESARTAN [Concomitant]
     Active Substance: CANDESARTAN
     Indication: Hypertension
  6. VITAMIN D2 [Concomitant]
     Active Substance: ERGOCALCIFEROL
  7. MONTELUKAST [Concomitant]
     Active Substance: MONTELUKAST
  8. LEVOCETIRIZINE [Concomitant]
     Active Substance: LEVOCETIRIZINE
  9. TIZANIDINE [Concomitant]
     Active Substance: TIZANIDINE
  10. HYDROCODONE [Concomitant]
     Active Substance: HYDROCODONE
     Dosage: 5/325 MG
  11. ZOLPIDEM [Concomitant]
     Active Substance: ZOLPIDEM TARTRATE
  12. POTASSIUM [Concomitant]
     Active Substance: POTASSIUM
  13. MAGNESIUM [Concomitant]
     Active Substance: MAGNESIUM

REACTIONS (3)
  - Accidental exposure to product [Unknown]
  - Product dose omission issue [Unknown]
  - Butterfly rash [Unknown]

NARRATIVE: CASE EVENT DATE: 20241116
